FAERS Safety Report 6691495-1 (Version None)
Quarter: 2010Q2

REPORT INFORMATION
  Report Type: 
  Country: None (occurrence: None)
  Receive Date: 20100414
  Receipt Date: 20090415
  Transmission Date: 20101027
  Serious: Yes (Other)
  Sender: FDA-Public Use
  Company Number: 09-144

PATIENT
  Age: 71 Year
  Sex: Male

DRUGS (7)
  1. ALEVE [Suspect]
     Indication: BACK PAIN
     Dosage: 220 MG, DAILY, ORAL
     Route: 048
     Dates: start: 20090311
  2. LEVOTHYROXINE SODIUM [Concomitant]
  3. LUNESTA [Concomitant]
  4. POLYGETHGLYCOL [Concomitant]
  5. WALGREEN SUPER ANTINAL [Concomitant]
  6. THIOTHIXENE [Concomitant]
  7. BENZTROPINE MESYLATE [Concomitant]

REACTIONS (1)
  - SOMNOLENCE [None]
